FAERS Safety Report 10042153 (Version 3)
Quarter: 2014Q2

REPORT INFORMATION
  Report Type: Report from Study
  Country: CN (occurrence: CN)
  Receive Date: 20140327
  Receipt Date: 20140421
  Transmission Date: 20141212
  Serious: Yes (Hospitalization, Other)
  Sender: FDA-Public Use
  Company Number: CN-BAYER-2014-013566

PATIENT
  Age: 51 Year
  Sex: Male

DRUGS (1)
  1. NEXAVAR [Suspect]
     Indication: HEPATOCELLULAR CARCINOMA
     Dosage: 400 MG, BID
     Route: 048
     Dates: start: 20140115, end: 20140317

REACTIONS (6)
  - Gastrointestinal haemorrhage [Recovered/Resolved]
  - Cancer pain [None]
  - Palmar-plantar erythrodysaesthesia syndrome [None]
  - Dysphonia [None]
  - Faeces discoloured [Recovered/Resolved]
  - Haematochezia [Recovered/Resolved]
